FAERS Safety Report 5943374-2 (Version None)
Quarter: 2008Q4

REPORT INFORMATION
  Report Type: 
  Country: None (occurrence: None)
  Receive Date: 20081105
  Receipt Date: 20081105
  Transmission Date: 20090506
  Serious: No
  Sender: FDA-Public Use
  Company Number: None

PATIENT
  Age: 53 Year
  Sex: Male
  Weight: 113.4 kg

DRUGS (1)
  1. VARENICLINE [Suspect]
     Indication: SMOKING CESSATION THERAPY
     Dosage: 0.5MG MG EVERY DAY PO
     Route: 048
     Dates: start: 20080818, end: 20081029

REACTIONS (2)
  - DISORIENTATION [None]
  - FEELING ABNORMAL [None]
